FAERS Safety Report 11588026 (Version 2)
Quarter: 2016Q1

REPORT INFORMATION
  Report Type: Spontaneous
  Country: US (occurrence: US)
  Receive Date: 20151002
  Receipt Date: 20160212
  Transmission Date: 20160525
  Serious: Yes (Hospitalization, Other)
  Sender: FDA-Public Use
  Company Number: US-ROCHE-1640849

PATIENT
  Age: 59 Year
  Sex: Female

DRUGS (8)
  1. ESBRIET [Suspect]
     Active Substance: PIRFENIDONE
     Route: 048
     Dates: start: 20141203, end: 20150808
  2. PROCHLORPERAZINE. [Concomitant]
     Active Substance: PROCHLORPERAZINE
     Indication: NAUSEA
     Route: 048
  3. PROCHLORPERAZINE. [Concomitant]
     Active Substance: PROCHLORPERAZINE
     Indication: VOMITING
  4. OXYGEN. [Concomitant]
     Active Substance: OXYGEN
     Route: 045
  5. POTASSIUM CHLORIDE. [Concomitant]
     Active Substance: POTASSIUM CHLORIDE
     Indication: BLOOD POTASSIUM
     Route: 048
  6. SPIRONOLACTON [Concomitant]
     Active Substance: SPIRONOLACTONE
     Indication: BLOOD POTASSIUM
     Dosage: TWO TABLETS
     Route: 048
  7. PREDNISONE. [Concomitant]
     Active Substance: PREDNISONE
     Dosage: EVERY MORNING.
     Route: 048
  8. ESBRIET [Suspect]
     Active Substance: PIRFENIDONE
     Indication: INTERSTITIAL LUNG DISEASE
     Route: 048
     Dates: start: 20140312

REACTIONS (8)
  - Hydronephrosis [Recovering/Resolving]
  - Abdominal discomfort [Unknown]
  - Cerebrovascular accident [Unknown]
  - Bladder mass [Unknown]
  - Nausea [Unknown]
  - Vomiting [Unknown]
  - Blood creatine increased [Unknown]
  - Polycythaemia [Unknown]

NARRATIVE: CASE EVENT DATE: 20150626
